FAERS Safety Report 8592887 (Version 3)
Quarter: 2014Q1

REPORT INFORMATION
  Report Type: Spontaneous
  Country: US (occurrence: US)
  Receive Date: 20120604
  Receipt Date: 20140128
  Transmission Date: 20141002
  Serious: Yes (Disabling, Other)
  Sender: FDA-Public Use
  Company Number: US-ASTRAZENECA-2012SE34544

PATIENT
  Age: 50 Year
  Sex: Male
  Weight: 87.5 kg

DRUGS (23)
  1. NEXIUM [Suspect]
     Indication: GASTROOESOPHAGEAL REFLUX DISEASE
     Route: 048
  2. NEXIUM [Suspect]
     Indication: GASTRIC DISORDER
     Route: 048
  3. PRILOSEC [Suspect]
     Indication: GASTROOESOPHAGEAL REFLUX DISEASE
     Route: 048
  4. PRILOSEC OTC [Suspect]
     Indication: GASTROOESOPHAGEAL REFLUX DISEASE
     Route: 048
  5. PROTONIX/CONTROLOC/SOMAC [Suspect]
     Indication: GASTROOESOPHAGEAL REFLUX DISEASE
     Route: 065
  6. PREVACID/LUPIZOLE/ZOTON [Suspect]
     Indication: GASTROOESOPHAGEAL REFLUX DISEASE
     Route: 065
  7. DEXILANT [Suspect]
     Indication: GASTROOESOPHAGEAL REFLUX DISEASE
     Route: 065
  8. FENIX [Suspect]
     Indication: GASTROOESOPHAGEAL REFLUX DISEASE
     Route: 065
  9. DORAFEM [Suspect]
     Indication: GASTROOESOPHAGEAL REFLUX DISEASE
     Route: 065
  10. ZANTAC OTC [Concomitant]
  11. TAGAMET [Concomitant]
  12. TUMS [Concomitant]
  13. ALKA-SELTZER [Concomitant]
  14. MILK OF MAGNESIA [Concomitant]
  15. PEPTO-BISMOL [Concomitant]
  16. ROLAIDS [Concomitant]
  17. MYLANTA [Concomitant]
  18. HYDROCODONE [Concomitant]
     Dosage: 30 MG 1-2 TAB PO EVERY FOUR HOUR AS NEEDED
  19. IBUPROFEN [Concomitant]
     Dosage: 600 MG PO EVERY SIX HOURS AS NEEDED
  20. LUNESTA [Concomitant]
  21. ASPIRIN [Concomitant]
  22. LOPRESSOR [Concomitant]
  23. RAMIPRIL [Concomitant]

REACTIONS (17)
  - Hip deformity [Unknown]
  - Myocardial infarction [Unknown]
  - Arthropathy [Unknown]
  - Osteoporosis [Unknown]
  - Multiple fractures [Unknown]
  - Diarrhoea [Unknown]
  - Abdominal pain [Unknown]
  - Cardiac disorder [Unknown]
  - Anxiety [Unknown]
  - Bone disorder [Unknown]
  - Arthritis [Unknown]
  - Peripheral arterial occlusive disease [Unknown]
  - Rheumatoid arthritis [Unknown]
  - Depression [Unknown]
  - Flatulence [Unknown]
  - Poor quality sleep [Unknown]
  - Diabetes mellitus [Unknown]
